FAERS Safety Report 24095497 (Version 1)
Quarter: 2024Q3

REPORT INFORMATION
  Report Type: Other
  Country: OM (occurrence: OM)
  Receive Date: 20240716
  Receipt Date: 20240716
  Transmission Date: 20241016
  Serious: Yes (Other)
  Sender: APPCO PHARMA
  Company Number: OM-Appco Pharma LLC-2159158

PATIENT
  Age: 30 Year
  Sex: Female

DRUGS (3)
  1. LABETALOL HYDROCHLORIDE [Suspect]
     Active Substance: LABETALOL\LABETALOL HYDROCHLORIDE
     Indication: Hypertension
     Route: 065
  2. PREDNISOLONE [Concomitant]
     Active Substance: PREDNISOLONE
     Route: 065
  3. DEXAMETHASONE [Suspect]
     Active Substance: DEXAMETHASONE
     Route: 065

REACTIONS (4)
  - Premature delivery [Unknown]
  - Maternal exposure during pregnancy [Unknown]
  - Pre-eclampsia [Unknown]
  - Drug ineffective [Unknown]
